FAERS Safety Report 9849403 (Version 1)
Quarter: 2014Q1

REPORT INFORMATION
  Report Type: Spontaneous
  Country: US (occurrence: None)
  Receive Date: 20140122
  Receipt Date: 20140122
  Transmission Date: 20141002
  Serious: Yes (Death)
  Sender: FDA-Public Use
  Company Number: B0958999A

PATIENT
  Age: 57 Year
  Sex: Male

DRUGS (5)
  1. BUPROPION HYDROCHLORIDE [Suspect]
     Route: 048
  2. FENTANYL [Suspect]
     Route: 062
  3. OXYCODONE [Suspect]
     Route: 048
  4. ALPRAZOLAM (FORMULATION UNKNOWN) (ALPRAZOLAM) [Suspect]
     Route: 048
  5. PARACETAMOL [Suspect]
     Route: 048

REACTIONS (1)
  - Drug abuse [None]
